FAERS Safety Report 9267050 (Version 2)
Quarter: 2013Q2

REPORT INFORMATION
  Report Type: Spontaneous
  Country: CA (occurrence: CA)
  Receive Date: 20130502
  Receipt Date: 20130521
  Transmission Date: 20140414
  Serious: Yes (Death, Other)
  Sender: FDA-Public Use
  Company Number: CA-PFIZER INC-2012225786

PATIENT
  Age: 49 Year
  Sex: Male

DRUGS (2)
  1. CHAMPIX [Suspect]
     Indication: SMOKING CESSATION THERAPY
     Dosage: UNK
     Dates: start: 20101206
  2. LIPITOR [Concomitant]
     Dosage: UNK

REACTIONS (8)
  - Completed suicide [Fatal]
  - Agitation [Unknown]
  - Abnormal behaviour [Unknown]
  - Weight decreased [Unknown]
  - Insomnia [Unknown]
  - Decreased appetite [Unknown]
  - Cognitive disorder [Unknown]
  - Feeling of despair [Unknown]
